FAERS Safety Report 19814446 (Version 4)
Quarter: 2021Q4

REPORT INFORMATION
  Report Type: Spontaneous
  Country: US (occurrence: US)
  Receive Date: 20210909
  Receipt Date: 20211101
  Transmission Date: 20220303
  Serious: Yes (Other)
  Sender: FDA-Public Use
  Company Number: US-PFIZER INC-202100986835

PATIENT
  Age: 57 Year
  Sex: Female
  Weight: 62.14 kg

DRUGS (1)
  1. ESTRING [Suspect]
     Active Substance: ESTRADIOL
     Indication: Menopause
     Dosage: UNK
     Route: 067
     Dates: start: 202105, end: 20210823

REACTIONS (3)
  - Bacterial vulvovaginitis [Not Recovered/Not Resolved]
  - Vulvovaginal pain [Unknown]
  - Illness [Unknown]

NARRATIVE: CASE EVENT DATE: 20210801
